FAERS Safety Report 8869635 (Version 2)
Quarter: 2012Q4

REPORT INFORMATION
  Report Type: 
  Country: US (occurrence: None)
  Receive Date: 20121031
  Receipt Date: 20121106
  Transmission Date: 20130627
  Serious: Yes (Disabling)
  Sender: FDA-Public Use
  Company Number: None

PATIENT
  Age: 81 Year
  Sex: Male
  Weight: 81.65 kg

DRUGS (1)
  1. CARDIOPLEGIC SOLUTION [Suspect]

REACTIONS (7)
  - Dysarthria [None]
  - Oedema peripheral [None]
  - Gout [None]
  - Aphasia [None]
  - Hallucination [None]
  - Confusional state [None]
  - Transient ischaemic attack [None]
